FAERS Safety Report 6993101-5 (Version None)
Quarter: 2010Q3

REPORT INFORMATION
  Report Type: 
  Country: None (occurrence: None)
  Receive Date: 20100917
  Receipt Date: 20091117
  Transmission Date: 20110219
  Serious: No
  Sender: FDA-Public Use
  Company Number: US-ASTRAZENECA-2009UW03707

PATIENT
  Age: 14 Year
  Sex: Female
  Weight: 61.2 kg

DRUGS (3)
  1. SEROQUEL [Suspect]
     Indication: ATTENTION DEFICIT/HYPERACTIVITY DISORDER
     Dosage: 25-200 MG
     Route: 048
     Dates: start: 20041025, end: 20080101
  2. SEROQUEL [Suspect]
     Indication: SLEEP DISORDER
     Dosage: 25-200 MG
     Route: 048
     Dates: start: 20041025, end: 20080101
  3. CONCERTA [Concomitant]

REACTIONS (3)
  - HYPERTENSION [None]
  - OBESITY [None]
  - TYPE 2 DIABETES MELLITUS [None]
